FAERS Safety Report 9207006 (Version 5)
Quarter: 2013Q3

REPORT INFORMATION
  Report Type: Report from Study
  Country: US (occurrence: US)
  Receive Date: 20130403
  Receipt Date: 20130712
  Transmission Date: 20140515
  Serious: Yes (Hospitalization)
  Sender: FDA-Public Use
  Company Number: US-ACTELION-A-NJ2013-80642

PATIENT
  Age: 33 Year
  Sex: Female

DRUGS (2)
  1. VELETRI [Suspect]
     Indication: PULMONARY ARTERIAL HYPERTENSION
     Dosage: 22.4 NG/KG, PER MINUTE
     Route: 042
     Dates: start: 20130306
  2. VELETRI [Suspect]
     Dosage: 18 NG/KG, PER MIN
     Route: 041
     Dates: start: 20130228

REACTIONS (24)
  - Dehydration [Unknown]
  - Blood iron decreased [Unknown]
  - Dizziness [Unknown]
  - Nausea [Recovering/Resolving]
  - Vomiting [Unknown]
  - Syncope [Unknown]
  - Diarrhoea [Recovering/Resolving]
  - Oedema [Recovering/Resolving]
  - Oedema peripheral [Recovering/Resolving]
  - Ascites [Recovering/Resolving]
  - Pain in jaw [Recovering/Resolving]
  - Dyspnoea exertional [Recovering/Resolving]
  - Loss of consciousness [Recovering/Resolving]
  - Pain in extremity [Recovering/Resolving]
  - Haemoglobin decreased [Unknown]
  - Anxiety [Unknown]
  - Fatigue [Unknown]
  - Headache [Unknown]
  - Dyspnoea [Unknown]
  - Flushing [Unknown]
  - Palpitations [Unknown]
  - Chest discomfort [Unknown]
  - Device issue [Unknown]
  - Feeling abnormal [Unknown]
